FAERS Safety Report 22329432 (Version 2)
Quarter: 2023Q4

REPORT INFORMATION
  Report Type: Spontaneous
  Country: JP (occurrence: JP)
  Receive Date: 20230517
  Receipt Date: 20231109
  Transmission Date: 20240109
  Serious: Yes (Other)
  Sender: FDA-Public Use
  Company Number: JP-Merck Healthcare KGaA-9366435

PATIENT
  Age: 56 Year
  Sex: Male
  Weight: 71 kg

DRUGS (6)
  1. METGLUCO [Suspect]
     Active Substance: METFORMIN HYDROCHLORIDE
     Indication: Type 2 diabetes mellitus
     Dosage: FREQUENCY TEXT: AFTER MORNING AND SUPPER
     Route: 048
     Dates: start: 2017
  2. IMEGLIMIN HYDROCHLORIDE [Suspect]
     Active Substance: IMEGLIMIN HYDROCHLORIDE
     Indication: Type 2 diabetes mellitus
     Route: 048
     Dates: start: 202202
  3. WARFARIN POTASSIUM [Suspect]
     Active Substance: WARFARIN POTASSIUM
     Indication: Product used for unknown indication
     Dosage: FREQUENCY TEXT: AFTER BREAKFAST
     Dates: start: 202202
  4. SITAGLIPTIN PHOSPHATE [Concomitant]
     Active Substance: SITAGLIPTIN PHOSPHATE
     Indication: Product used for unknown indication
  5. MIGLITOL [Concomitant]
     Active Substance: MIGLITOL
     Indication: Product used for unknown indication
  6. ATORVASTATIN CALCIUM [Concomitant]
     Active Substance: ATORVASTATIN CALCIUM
     Indication: Product used for unknown indication
     Dosage: FREQUENCY TEXT: AFTER BREAKFAST
     Dates: start: 202202

REACTIONS (5)
  - Retinal haemorrhage [Recovering/Resolving]
  - Dizziness [Recovered/Resolved]
  - Glycosylated haemoglobin increased [Recovering/Resolving]
  - Gastrointestinal disorder [Recovered/Resolved]
  - Contraindicated product administered [Unknown]

NARRATIVE: CASE EVENT DATE: 20170101
